FAERS Safety Report 24308336 (Version 2)
Quarter: 2024Q3

REPORT INFORMATION
  Report Type: Spontaneous
  Country: DE (occurrence: None)
  Receive Date: 20240911
  Receipt Date: 20240913
  Transmission Date: 20241017
  Serious: Yes (Other)
  Sender: ASTRAZENECA
  Company Number: 2024A203678

PATIENT
  Age: 65 Year
  Sex: Female

DRUGS (4)
  1. ROSUVASTATIN [Suspect]
     Active Substance: ROSUVASTATIN\ROSUVASTATIN CALCIUM
     Indication: Xanthelasma
     Dates: start: 202301
  2. ATORVASTATIN [Suspect]
     Active Substance: ATORVASTATIN
     Indication: Hypercholesterolaemia
     Dosage: ABZ / DOSAGE: 0-0-1
     Route: 048
     Dates: start: 202302
  3. IBU [Concomitant]
     Active Substance: IBUPROFEN
     Indication: Product used for unknown indication
  4. ASPIRIN [Concomitant]
     Active Substance: ASPIRIN
     Indication: Product used for unknown indication

REACTIONS (12)
  - Osteochondrosis [Unknown]
  - Cataract [Unknown]
  - Back pain [Unknown]
  - Acne [Unknown]
  - Abdominal hernia [Unknown]
  - Spinal osteoarthritis [Unknown]
  - Groin pain [Recovered/Resolved]
  - Pruritus [Unknown]
  - Arthralgia [Unknown]
  - Visual impairment [Unknown]
  - Bone deformity [Unknown]
  - Insomnia [Unknown]

NARRATIVE: CASE EVENT DATE: 20230101
